FAERS Safety Report 5473364-8 (Version None)
Quarter: 2007Q4

REPORT INFORMATION
  Report Type: 
  Country: None (occurrence: None)
  Receive Date: 20071001
  Receipt Date: 20070926
  Transmission Date: 20080405
  Serious: Yes (Life-Threatening)
  Sender: FDA-Public Use
  Company Number: IT-JNJFOC-20070905729

PATIENT
  Sex: Female

DRUGS (6)
  1. RISPERDAL [Suspect]
     Indication: BIPOLAR I DISORDER
     Route: 048
  2. DEPAKOTE [Suspect]
     Indication: BIPOLAR I DISORDER
     Route: 048
  3. OMERPRAZOLE [Concomitant]
     Indication: HIATUS HERNIA
     Route: 048
  4. CALCIUM D3 [Concomitant]
     Indication: OSTEOPOROSIS
     Dosage: 1000 MG + 800 UI
     Route: 048
  5. EUTIROX [Concomitant]
     Indication: HYPOTHYROIDISM
  6. FOSAVANCE [Concomitant]
     Indication: OSTEOPOROSIS
     Route: 048

REACTIONS (8)
  - AMAUROSIS [None]
  - CONJUNCTIVAL HAEMORRHAGE [None]
  - ECCHYMOSIS [None]
  - GINGIVAL BLEEDING [None]
  - HYPERPYREXIA [None]
  - PANCYTOPENIA [None]
  - RETINAL HAEMORRHAGE [None]
  - SUBARACHNOID HAEMORRHAGE [None]
